FAERS Safety Report 9476499 (Version 2)
Quarter: 2013Q3

REPORT INFORMATION
  Report Type: Spontaneous
  Country: US (occurrence: US)
  Receive Date: 20130826
  Receipt Date: 20130930
  Transmission Date: 20140515
  Serious: Yes (Other)
  Sender: FDA-Public Use
  Company Number: US-BAYER-2013-100659

PATIENT
  Age: 33 Year
  Sex: Female
  Weight: 69.84 kg

DRUGS (1)
  1. MIRENA [Suspect]
     Indication: CONTRACEPTION
     Dosage: 20 MCG/24HR, CONT
     Route: 015
     Dates: end: 20130917

REACTIONS (2)
  - Device dislocation [Recovered/Resolved]
  - Complication of device removal [None]
